FAERS Safety Report 16954432 (Version 2)
Quarter: 2019Q4

REPORT INFORMATION
  Report Type: Spontaneous
  Country: BR (occurrence: BR)
  Receive Date: 20191023
  Receipt Date: 20191205
  Transmission Date: 20200122
  Serious: Yes (Disabling, Other)
  Sender: FDA-Public Use
  Company Number: NVSC2019BR013179

PATIENT
  Sex: Female

DRUGS (1)
  1. ESTRADOT [Suspect]
     Active Substance: ESTRADIOL
     Indication: PRODUCT USED FOR UNKNOWN INDICATION
     Dosage: UNK
     Route: 062

REACTIONS (10)
  - Pruritus [Unknown]
  - Depression [Unknown]
  - Insomnia [Unknown]
  - Accident [Unknown]
  - Feeling hot [Unknown]
  - Upper limb fracture [Unknown]
  - Movement disorder [Unknown]
  - Anxiety [Unknown]
  - Hypersensitivity [Unknown]
  - Product adhesion issue [Unknown]
